FAERS Safety Report 14337162 (Version 5)
Quarter: 2018Q2

REPORT INFORMATION
  Report Type: Spontaneous
  Country: US (occurrence: US)
  Receive Date: 20171229
  Receipt Date: 20180423
  Transmission Date: 20180711
  Serious: Yes (Other)
  Sender: FDA-Public Use
  Company Number: US-LUNDBECK-DKLU2041790

PATIENT
  Age: 66 Year
  Sex: Male
  Weight: 80 kg

DRUGS (15)
  1. FLUDROCORTISONE [Concomitant]
     Active Substance: FLUDROCORTISONE
     Indication: AUTONOMIC FAILURE SYNDROME
     Route: 048
  2. MELATONIN [Concomitant]
     Active Substance: MELATONIN
     Indication: SLEEP DISORDER
     Route: 048
  3. NORTHERA [Suspect]
     Active Substance: DROXIDOPA
     Indication: AUTONOMIC FAILURE SYNDROME
     Route: 048
  4. NORTHERA [Suspect]
     Active Substance: DROXIDOPA
     Route: 065
     Dates: start: 20171213, end: 20171224
  5. PYRIDOSTIGMINE [Suspect]
     Active Substance: PYRIDOSTIGMINE
     Indication: PRODUCT USED FOR UNKNOWN INDICATION
     Route: 065
  6. VITAMIN B12 [Concomitant]
     Active Substance: CYANOCOBALAMIN
     Indication: VITAMIN SUPPLEMENTATION
     Route: 048
     Dates: start: 20170508
  7. NORTHERA [Suspect]
     Active Substance: DROXIDOPA
     Route: 065
     Dates: start: 20171213, end: 20171224
  8. PYRIDOSTIGMINE [Suspect]
     Active Substance: PYRIDOSTIGMINE
     Route: 065
  9. THERMOTABS [Concomitant]
     Indication: AUTONOMIC FAILURE SYNDROME
     Route: 048
     Dates: start: 20161025
  10. NORTHERA [Suspect]
     Active Substance: DROXIDOPA
     Indication: ORTHOSTATIC HYPOTENSION
     Route: 048
  11. NORTHERA [Suspect]
     Active Substance: DROXIDOPA
     Route: 048
  12. NORTHERA [Suspect]
     Active Substance: DROXIDOPA
     Route: 065
     Dates: start: 20171213, end: 20171224
  13. PYRIDOSTIGMINE [Suspect]
     Active Substance: PYRIDOSTIGMINE
     Route: 065
  14. MIDODRINE [Concomitant]
     Active Substance: MIDODRINE
     Indication: AUTONOMIC FAILURE SYNDROME
     Route: 065
  15. FLUDROCORTISONE [Concomitant]
     Active Substance: FLUDROCORTISONE
     Route: 048

REACTIONS (13)
  - Pyrexia [Recovered/Resolved]
  - Abdominal discomfort [Recovered/Resolved]
  - Blood pressure increased [Recovered/Resolved]
  - Ocular discomfort [Recovered/Resolved]
  - Confusional state [Unknown]
  - Seizure [Recovered/Resolved]
  - Viral infection [Unknown]
  - Nausea [Recovered/Resolved]
  - Tremor [Recovered/Resolved]
  - Eye pain [Unknown]
  - Dysarthria [Recovered/Resolved]
  - Abdominal pain upper [Recovered/Resolved]
  - Headache [Recovered/Resolved]

NARRATIVE: CASE EVENT DATE: 201712
